FAERS Safety Report 4489074-X (Version None)
Quarter: 2004Q4

REPORT INFORMATION
  Report Type: 
  Country: None (occurrence: None)
  Receive Date: 20041029
  Receipt Date: 20041009
  Transmission Date: 20050328
  Serious: Yes (Hospitalization)
  Sender: FDA-Public Use
  Company Number: US-ROCHE-383022

PATIENT
  Age: 54 Year
  Sex: Male
  Weight: 130 kg

DRUGS (3)
  1. PEGASYS [Suspect]
     Indication: HEPATITIS C
     Dosage: TAKEN WEEKLY.
     Route: 058
     Dates: start: 20040417
  2. COPEGUS [Suspect]
     Indication: HEPATITIS C
     Route: 048
     Dates: start: 20040417
  3. NADOLOL [Concomitant]

REACTIONS (8)
  - ABASIA [None]
  - ANAEMIA [None]
  - ANOREXIA [None]
  - BLOOD SODIUM DECREASED [None]
  - DIABETES MELLITUS [None]
  - DIABETIC NEUROPATHY [None]
  - INFECTION [None]
  - PAIN IN EXTREMITY [None]
